FAERS Safety Report 8115074-4 (Version None)
Quarter: 2012Q1

REPORT INFORMATION
  Report Type: 
  Country: None (occurrence: None)
  Receive Date: 20120119
  Receipt Date: 20120111
  Transmission Date: 20120608
  Serious: Yes (Hospitalization)
  Sender: FDA-Public Use
  Company Number: AECAN201100238

PATIENT
  Age: 53 Year
  Sex: Female

DRUGS (14)
  1. EFFEXOR [Concomitant]
  2. VARENICLINE TARTRATE [Concomitant]
  3. INFLUENZA VACCINE [Concomitant]
  4. PROLASTIN-C [Suspect]
     Indication: ALPHA-1 ANTI-TRYPSIN DEFICIENCY
     Dosage: 5400 MG;QW;IV
     Route: 042
     Dates: start: 20110713
  5. SYMBICORT [Concomitant]
  6. PREDNISONE TAB [Concomitant]
  7. ALBUTEROL SULFATE AUTOHALER [Concomitant]
  8. SPIRIVA [Concomitant]
  9. AVELOX [Concomitant]
  10. DAXAS [Concomitant]
  11. CLAVULIN /01000301/ [Concomitant]
  12. NAPROXEN [Concomitant]
  13. LYRICA [Concomitant]
  14. OXYCODONE HCL [Concomitant]

REACTIONS (6)
  - HEADACHE [None]
  - DECREASED APPETITE [None]
  - DYSPNOEA [None]
  - ALPHA-1 ANTI-TRYPSIN DEFICIENCY [None]
  - DISEASE PROGRESSION [None]
  - BLOOD PRESSURE INCREASED [None]
